FAERS Safety Report 9790887 (Version 1)
Quarter: 2013Q4

REPORT INFORMATION
  Report Type: Spontaneous
  Country: US (occurrence: US)
  Receive Date: 20131231
  Receipt Date: 20131231
  Transmission Date: 20140711
  Serious: Yes (Other)
  Sender: FDA-Public Use
  Company Number: US-BRISTOL-MYERS SQUIBB COMPANY-19937556

PATIENT
  Age: 64 Year
  Sex: Female

DRUGS (7)
  1. BYDUREON [Suspect]
     Dates: start: 201306, end: 201308
  2. LISINOPRIL [Suspect]
  3. ZOLOFT [Concomitant]
  4. AMBIEN [Concomitant]
  5. NEXIUM [Concomitant]
  6. TOPAMAX [Concomitant]
  7. VYTORIN [Concomitant]

REACTIONS (1)
  - Pancreatitis [Unknown]
